FAERS Safety Report 5299259-0 (Version None)
Quarter: 2007Q2

REPORT INFORMATION
  Report Type: 
  Country: None (occurrence: None)
  Receive Date: 20070417
  Receipt Date: 20070402
  Transmission Date: 20071010
  Serious: Yes (Hospitalization)
  Sender: FDA-Public Use
  Company Number: DE-ROCHE-489389

PATIENT
  Age: 38 Year
  Sex: Female
  Weight: 61 kg

DRUGS (1)
  1. ROCEPHIN [Suspect]
     Route: 042
     Dates: start: 20070306, end: 20070321

REACTIONS (2)
  - BILIARY COLIC [None]
  - CHOLELITHIASIS [None]
